FAERS Safety Report 6001231-X (Version None)
Quarter: 2008Q4

REPORT INFORMATION
  Report Type: 
  Country: None (occurrence: None)
  Receive Date: 20081215
  Receipt Date: 20071102
  Transmission Date: 20090506
  Serious: No
  Sender: FDA-Public Use
  Company Number: US-AMGEN-KDL250833

PATIENT
  Sex: Female

DRUGS (1)
  1. ENBREL [Suspect]
     Indication: PSORIASIS
     Dates: start: 20071001

REACTIONS (5)
  - ABDOMINAL DISCOMFORT [None]
  - CONTUSION [None]
  - HEADACHE [None]
  - INJECTION SITE ERYTHEMA [None]
  - PRURITUS [None]
